FAERS Safety Report 5963296-0 (Version None)
Quarter: 2008Q4

REPORT INFORMATION
  Report Type: 
  Country: None (occurrence: None)
  Receive Date: 20081121
  Receipt Date: 20081121
  Transmission Date: 20090506
  Serious: Yes (Hospitalization, Disabling)
  Sender: FDA-Public Use
  Company Number: None

PATIENT
  Age: 34 Year
  Sex: Female
  Weight: 58.9676 kg

DRUGS (1)
  1. CHANTIX [Suspect]
     Indication: SMOKING CESSATION THERAPY
     Dosage: 1 MG 2X DAY- MORN/EVE PO
     Route: 048
     Dates: start: 20080601, end: 20080801

REACTIONS (10)
  - ABNORMAL BEHAVIOUR [None]
  - CRYING [None]
  - DEPRESSION [None]
  - FEELING ABNORMAL [None]
  - MEMORY IMPAIRMENT [None]
  - MOOD SWINGS [None]
  - STRESS [None]
  - SUICIDAL IDEATION [None]
  - TACHYPHRENIA [None]
  - THINKING ABNORMAL [None]
